FAERS Safety Report 7043804-1 (Version None)
Quarter: 2010Q4

REPORT INFORMATION
  Report Type: 
  Country: None (occurrence: None)
  Receive Date: 20101012
  Receipt Date: 20101012
  Transmission Date: 20110411
  Serious: Yes (Other)
  Sender: FDA-Public Use
  Company Number: None

PATIENT
  Sex: Male
  Weight: 86.1834 kg

DRUGS (2)
  1. OXYCONTIN [Suspect]
     Indication: LUMBAR SPINAL STENOSIS
     Dosage: BID ORAL
     Route: 048
     Dates: start: 20100915, end: 20100930
  2. OXYCONTIN [Suspect]
     Indication: PAIN
     Dosage: BID ORAL
     Route: 048
     Dates: start: 20100915, end: 20100930

REACTIONS (2)
  - ANGIOEDEMA [None]
  - RASH PRURITIC [None]
